FAERS Safety Report 24569777 (Version 1)
Quarter: 2024Q4

REPORT INFORMATION
  Report Type: Spontaneous
  Country: US (occurrence: US)
  Receive Date: 20241031
  Receipt Date: 20241031
  Transmission Date: 20250114
  Serious: Yes (Hospitalization, Other)
  Sender: RECKITT BENCKISER
  Company Number: US-INDIVIOR US-INDV-157253-2024

PATIENT
  Age: 29 Year
  Sex: Male

DRUGS (52)
  1. SUBOXONE [Suspect]
     Active Substance: BUPRENORPHINE HYDROCHLORIDE\NALOXONE HYDROCHLORIDE
     Indication: Drug dependence
     Dosage: 8 MILLIGRAM, QD
     Route: 060
  2. SUBOXONE [Suspect]
     Active Substance: BUPRENORPHINE HYDROCHLORIDE\NALOXONE HYDROCHLORIDE
     Dosage: 8 MILLIGRAM, BID
     Route: 065
  3. BUPRENORPHINE [Suspect]
     Active Substance: BUPRENORPHINE
     Indication: Drug dependence
     Dosage: 8 MILLIGRAM, QD
     Route: 060
     Dates: start: 202104
  4. BUPRENORPHINE\NALOXONE [Suspect]
     Active Substance: BUPRENORPHINE\NALOXONE
     Indication: Drug dependence
     Dosage: 8 MILLIGRAM, QD
     Route: 060
     Dates: start: 202104
  5. BUPRENORPHINE\NALOXONE [Suspect]
     Active Substance: BUPRENORPHINE\NALOXONE
     Indication: Drug dependence
     Dosage: UNK
     Route: 065
  6. HYDROXYZINE PAMOATE [Concomitant]
     Active Substance: HYDROXYZINE PAMOATE
     Indication: Product used for unknown indication
     Dosage: 100 MILLIGRAM, QD
     Route: 048
     Dates: start: 202104
  7. IBUPROFEN [Concomitant]
     Active Substance: IBUPROFEN
     Indication: Product used for unknown indication
     Dosage: 600 MILLIGRAM, Q6H
     Route: 048
     Dates: start: 202104
  8. MIRTAZAPINE [Concomitant]
     Active Substance: MIRTAZAPINE
     Indication: Product used for unknown indication
     Dosage: 15 MILLIGRAM, QHS
     Route: 048
     Dates: start: 202104
  9. NICOTINE POLACRILEX [Concomitant]
     Active Substance: NICOTINE
     Indication: Product used for unknown indication
     Dosage: 2 MILLIGRAM, Q4H
     Route: 048
     Dates: start: 202104
  10. PROTONIX [Concomitant]
     Active Substance: PANTOPRAZOLE SODIUM
     Indication: Product used for unknown indication
     Dosage: 20 MILLIGRAM, QD
     Route: 048
     Dates: start: 202105
  11. QUETIAPINE [Concomitant]
     Active Substance: QUETIAPINE
     Indication: Product used for unknown indication
     Dosage: 75 MILLIGRAM, QHS
     Route: 048
     Dates: start: 202105
  12. NICOTINE [Concomitant]
     Active Substance: NICOTINE
     Indication: Product used for unknown indication
     Dosage: UNK
     Route: 055
  13. REMERON [Concomitant]
     Active Substance: MIRTAZAPINE
     Indication: Product used for unknown indication
     Dosage: 15 MILLIGRAM, UNKNOWN
     Route: 065
  14. COVID-19 VACCINE [Concomitant]
     Indication: COVID-19 prophylaxis
     Dosage: UNK
     Route: 065
  15. FOLIC ACID [Concomitant]
     Active Substance: FOLIC ACID
     Indication: Product used for unknown indication
     Dosage: 1 MILLIGRAM, QD
     Route: 048
  16. NICODERM CQ [Concomitant]
     Active Substance: NICOTINE
     Indication: Product used for unknown indication
     Dosage: 1 DOSAGE FORM, QD
     Route: 062
  17. POTASSIUM CHLORIDE [Concomitant]
     Active Substance: POTASSIUM CHLORIDE
     Indication: Product used for unknown indication
     Dosage: 40 DOSAGE FORM, QD
     Route: 048
  18. THIAMINE HYDROCHLORIDE [Concomitant]
     Active Substance: THIAMINE HYDROCHLORIDE
     Indication: Product used for unknown indication
     Dosage: 100 MILLIGRAM, QD
     Route: 048
  19. LIORESAL [Concomitant]
     Active Substance: BACLOFEN
     Indication: Product used for unknown indication
     Dosage: 10 MILLIGRAM, TID
     Route: 048
  20. THORAZINE [Concomitant]
     Active Substance: CHLORPROMAZINE
     Indication: Product used for unknown indication
     Dosage: 50 MILLIGRAM, Q6H
     Route: 048
  21. MOTRIN [Concomitant]
     Active Substance: IBUPROFEN
     Indication: Pain
     Dosage: 600 MILLIGRAM, Q6H
     Route: 048
  22. ATIVAN [Concomitant]
     Active Substance: LORAZEPAM
     Indication: Alcohol withdrawal syndrome
     Dosage: 1 MILLIGRAM, Q6H
     Route: 048
  23. ATIVAN [Concomitant]
     Active Substance: LORAZEPAM
     Indication: Drug withdrawal syndrome
  24. NICORETTE [Concomitant]
     Active Substance: NICOTINE
     Indication: Product used for unknown indication
     Dosage: 2 MILLIGRAM, Q4H
     Route: 065
  25. PNEUMOVAX 23 [Concomitant]
     Active Substance: PNEUMOCOCCAL VACCINE, POLYVALENT 23
     Indication: Product used for unknown indication
     Dosage: 0.5 MILLILITER, ONE TIME DOSE
     Route: 065
  26. SEROQUEL [Concomitant]
     Active Substance: QUETIAPINE FUMARATE
     Indication: Product used for unknown indication
     Dosage: 100 MILLIGRAM, QHS
     Route: 048
  27. TUBERSOL [Concomitant]
     Active Substance: TUBERCULIN PURIFIED PROTEIN DERIVATIVE
     Indication: Product used for unknown indication
     Dosage: 5 UNIT, ONE TIME DOSE
     Route: 023
  28. THORAZINE [Concomitant]
     Active Substance: CHLORPROMAZINE
     Indication: Agitation
     Dosage: 50 MILLIGRAM, Q6H
     Route: 065
  29. VISTARIL [Concomitant]
     Active Substance: HYDROXYZINE PAMOATE
     Indication: Anxiety
     Dosage: 50 MILLIGRAM, Q6H
     Route: 065
  30. LORAZEPAM [Concomitant]
     Active Substance: LORAZEPAM
     Indication: Product used for unknown indication
     Dosage: 1 MILLIGRAM, Q6H
     Route: 048
  31. VITAMIN B1 [Concomitant]
     Active Substance: THIAMINE HYDROCHLORIDE
     Indication: Product used for unknown indication
     Dosage: 100 MILLIGRAM, QD
     Route: 048
  32. TEMOVATE [Concomitant]
     Active Substance: CLOBETASOL PROPIONATE
     Indication: Product used for unknown indication
     Dosage: 0.05 PERCENT, QD
     Route: 061
  33. KLONOPIN [Concomitant]
     Active Substance: CLONAZEPAM
     Indication: Product used for unknown indication
     Dosage: 0.5 MILLIGRAM, QHS
     Route: 048
  34. TYLENOL [Concomitant]
     Active Substance: ACETAMINOPHEN
     Indication: Pyrexia
     Route: 065
  35. TYLENOL [Concomitant]
     Active Substance: ACETAMINOPHEN
     Indication: Pain
  36. ALUMINUM HYDROXIDE\MAGNESIUM HYDROXIDE [Concomitant]
     Active Substance: ALUMINUM HYDROXIDE\MAGNESIUM HYDROXIDE
     Indication: Dyspepsia
     Dosage: 30 MILLILITER, Q6H
     Route: 048
  37. TIGAN [Concomitant]
     Active Substance: TRIMETHOBENZAMIDE HYDROCHLORIDE
     Indication: Product used for unknown indication
     Dosage: 200 MILLIGRAM, UNKNOWN
     Route: 030
  38. CLINDAMYCIN [Concomitant]
     Active Substance: CLINDAMYCIN
     Indication: Product used for unknown indication
     Dosage: 300 MILLIGRAM, UNKNOWN
     Route: 065
  39. SULFAMETHOXAZOLE AND TRIMETHOPRIM [Concomitant]
     Active Substance: SULFAMETHOXAZOLE\TRIMETHOPRIM
     Indication: Product used for unknown indication
     Dosage: UNK
     Route: 065
  40. MUPIROCIN [Concomitant]
     Active Substance: MUPIROCIN
     Indication: Product used for unknown indication
     Dosage: 2 PERCENT, UNKNOWN
     Route: 065
  41. WELLBUTRIN [Concomitant]
     Active Substance: BUPROPION HYDROCHLORIDE
     Indication: Product used for unknown indication
     Dosage: 150 MILLIGRAM, UNKNOWN
     Route: 065
  42. AMOXICILLIN [Concomitant]
     Active Substance: AMOXICILLIN
     Indication: Product used for unknown indication
     Dosage: 500 MILLIGRAM, UNKNOWN
     Route: 065
  43. CIPROFLOXACIN HYDROCHLORIDE [Concomitant]
     Active Substance: CIPROFLOXACIN HYDROCHLORIDE
     Indication: Product used for unknown indication
     Dosage: 0.3 PERCENT, UNKNOWN
     Route: 065
  44. OSELTAMIVIR [Concomitant]
     Active Substance: OSELTAMIVIR
     Indication: Product used for unknown indication
     Dosage: 75 MILLIGRAM, UNKNOWN
     Route: 065
  45. NAPROXEN [Concomitant]
     Active Substance: NAPROXEN
     Indication: Product used for unknown indication
     Dosage: 500 MILLIGRAM, UNKNOWN
     Route: 065
  46. ADVAIR HFA [Concomitant]
     Active Substance: FLUTICASONE PROPIONATE\SALMETEROL XINAFOATE
     Indication: Product used for unknown indication
     Dosage: UNK
     Route: 065
  47. AZITHROMYCIN [Concomitant]
     Active Substance: AZITHROMYCIN
     Indication: Product used for unknown indication
     Dosage: 250 MILLIGRAM, UNKNOWN
     Route: 065
  48. FLUCONAZOLE [Concomitant]
     Active Substance: FLUCONAZOLE
     Indication: Product used for unknown indication
     Dosage: 100 MILLIGRAM, UNKNOWN
     Route: 065
  49. AMPHETAMINE ASPARTATE [Concomitant]
     Active Substance: AMPHETAMINE ASPARTATE
     Indication: Product used for unknown indication
     Dosage: 30 MILLIGRAM, UNKNOWN
     Route: 065
  50. CONCERTA [Concomitant]
     Active Substance: METHYLPHENIDATE HYDROCHLORIDE
     Indication: Product used for unknown indication
     Dosage: 54 MILLIGRAM, UNKNOWN
     Route: 065
  51. VYVANSE [Concomitant]
     Active Substance: LISDEXAMFETAMINE DIMESYLATE
     Indication: Product used for unknown indication
     Dosage: 40 MILLIGRAM, UNKNOWN
     Route: 065
  52. ADDERALL [Concomitant]
     Active Substance: AMPHETAMINE ASPARTATE\AMPHETAMINE SULFATE\DEXTROAMPHETAMINE SACCHARATE\DEXTROAMPHETAMINE SULFATE
     Indication: Product used for unknown indication
     Dosage: 25 MILLIGRAM, QD
     Route: 048

REACTIONS (9)
  - Suicide attempt [Recovered/Resolved]
  - Suicidal ideation [Recovered/Resolved]
  - Drug detoxification [Unknown]
  - Drug dependence [Unknown]
  - Bipolar disorder [Unknown]
  - Dental caries [Unknown]
  - Tooth erosion [Unknown]
  - Drug withdrawal syndrome [Recovering/Resolving]
  - Inappropriate schedule of product administration [Unknown]

NARRATIVE: CASE EVENT DATE: 20210401
